FAERS Safety Report 23219470 (Version 5)
Quarter: 2025Q2

REPORT INFORMATION
  Report Type: Spontaneous
  Country: JP (occurrence: JP)
  Receive Date: 20231122
  Receipt Date: 20250408
  Transmission Date: 20250716
  Serious: Yes (Hospitalization)
  Sender: EISAI
  Company Number: JP-Eisai-202309926_LEN-EC_P_1

PATIENT
  Age: 62 Year
  Sex: Female
  Weight: 55 kg

DRUGS (6)
  1. LENVIMA [Suspect]
     Active Substance: LENVATINIB
     Indication: Endometrial cancer
     Dates: start: 20231017, end: 20231107
  2. LENVIMA [Suspect]
     Active Substance: LENVATINIB
     Indication: Ovarian cancer
     Dates: start: 20231207, end: 20240207
  3. LENVIMA [Suspect]
     Active Substance: LENVATINIB
     Dosage: FIVE DAYS ON AND TWO DAYS OFF
  4. KEYTRUDA [Suspect]
     Active Substance: PEMBROLIZUMAB
     Indication: Ovarian cancer
     Route: 041
     Dates: start: 20231017, end: 20231017
  5. KEYTRUDA [Suspect]
     Active Substance: PEMBROLIZUMAB
     Indication: Endometrial cancer
     Route: 041
     Dates: start: 20231207, end: 20240118
  6. KEYTRUDA [Suspect]
     Active Substance: PEMBROLIZUMAB
     Route: 041

REACTIONS (5)
  - Fulminant type 1 diabetes mellitus [Recovering/Resolving]
  - Amylase increased [Recovering/Resolving]
  - Lipase increased [Recovering/Resolving]
  - Arthritis [Unknown]
  - Dizziness [Unknown]

NARRATIVE: CASE EVENT DATE: 20231023
